FAERS Safety Report 20686074 (Version 1)
Quarter: 2022Q2

REPORT INFORMATION
  Report Type: Spontaneous
  Country: US (occurrence: US)
  Receive Date: 20220407
  Receipt Date: 20220407
  Transmission Date: 20220720
  Serious: No
  Sender: FDA-Public Use
  Company Number: US-JAZZ-2022-US-008628

PATIENT
  Sex: Female

DRUGS (3)
  1. SUNOSI [Suspect]
     Active Substance: SOLRIAMFETOL
     Indication: Narcolepsy
     Dosage: 150 MILLIGRAM
  2. SUNOSI [Suspect]
     Active Substance: SOLRIAMFETOL
     Dosage: 150 MILLIGRAM, BID
  3. SUNOSI [Suspect]
     Active Substance: SOLRIAMFETOL
     Dosage: 225 MILLIGRAM

REACTIONS (3)
  - Overdose [Unknown]
  - Intentional product misuse [Unknown]
  - Off label use [Unknown]
